FAERS Safety Report 24959231 (Version 1)
Quarter: 2025Q1

REPORT INFORMATION
  Report Type: Spontaneous
  Country: IT (occurrence: IT)
  Receive Date: 20250212
  Receipt Date: 20250212
  Transmission Date: 20250409
  Serious: Yes (Other)
  Sender: STRIDES
  Company Number: None

PATIENT
  Age: 71 Year
  Sex: Female

DRUGS (8)
  1. COLCHICINE [Suspect]
     Active Substance: COLCHICINE
     Indication: ASIA syndrome
     Route: 065
     Dates: start: 2022, end: 202211
  2. METHOTREXATE [Suspect]
     Active Substance: METHOTREXATE
     Indication: ASIA syndrome
     Route: 065
     Dates: start: 2022, end: 202211
  3. AZATHIOPRINE [Suspect]
     Active Substance: AZATHIOPRINE
     Indication: ASIA syndrome
     Route: 065
     Dates: start: 2022, end: 202211
  4. PREDNISOLONE [Suspect]
     Active Substance: PREDNISOLONE
     Indication: ASIA syndrome
     Route: 065
     Dates: start: 2022
  5. PREDNISOLONE [Suspect]
     Active Substance: PREDNISOLONE
     Route: 065
  6. PREDNISOLONE [Suspect]
     Active Substance: PREDNISOLONE
     Route: 065
  7. ZOLEDRONIC ACID [Suspect]
     Active Substance: ZOLEDRONIC ACID
     Indication: Osteoporosis prophylaxis
     Route: 065
     Dates: start: 2022
  8. SPIKEVAX [Suspect]
     Active Substance: CX-046684
     Indication: COVID-19 immunisation
     Route: 065

REACTIONS (7)
  - Disease progression [Recovered/Resolved]
  - Drug ineffective [Unknown]
  - Decreased appetite [Unknown]
  - Hepatic enzyme increased [Unknown]
  - Alopecia [Unknown]
  - Diarrhoea [Unknown]
  - Off label use [Unknown]

NARRATIVE: CASE EVENT DATE: 20220101
